FAERS Safety Report 8376269-8 (Version None)
Quarter: 2012Q2

REPORT INFORMATION
  Report Type: 
  Country: None (occurrence: None)
  Receive Date: 20120517
  Receipt Date: 20120507
  Transmission Date: 20120825
  Serious: Yes (Hospitalization)
  Sender: FDA-Public Use
  Company Number: 2012MA006086

PATIENT
  Age: 74 Year
  Sex: Female

DRUGS (7)
  1. INSOMNIN [Concomitant]
  2. DOXIMED [Concomitant]
  3. RANOPRIN [Concomitant]
  4. SUPRIUM [Concomitant]
  5. ANAFRANIL [Concomitant]
  6. HALCION [Concomitant]
  7. ZOLPIDEM TARTRATE [Suspect]
     Indication: INSOMNIA
     Dosage: 10 MG; QD; PO
     Route: 048
     Dates: start: 20120413

REACTIONS (2)
  - FALL [None]
  - UPPER LIMB FRACTURE [None]
